FAERS Safety Report 7689730-6 (Version None)
Quarter: 2011Q3

REPORT INFORMATION
  Report Type: 
  Country: None (occurrence: None)
  Receive Date: 20110817
  Receipt Date: 20110804
  Transmission Date: 20111222
  Serious: Yes (Hospitalization)
  Sender: FDA-Public Use
  Company Number: IT-CELGENEUS-083-20785-11072275

PATIENT
  Sex: Female

DRUGS (3)
  1. THALIDOMIDE [Suspect]
     Indication: MULTIPLE MYELOMA
     Dosage: 200 MILLIGRAM
     Route: 048
     Dates: start: 20110519, end: 20110526
  2. DEXAMETHASONE SODIUM PHOSPHATE [Concomitant]
     Route: 048
  3. ORAMORPH SR [Concomitant]
     Route: 048

REACTIONS (4)
  - ASTHENIA [None]
  - NAUSEA [None]
  - BRADYPHRENIA [None]
  - HYPOKINESIA [None]
